FAERS Safety Report 12464348 (Version 1)
Quarter: 2016Q2

REPORT INFORMATION
  Report Type: Spontaneous
  Country: US (occurrence: None)
  Receive Date: 20160613
  Receipt Date: 20160613
  Transmission Date: 20160815
  Serious: No
  Sender: FDA-Public Use
  Company Number: None

PATIENT
  Age: 79 Year
  Sex: Female
  Weight: 59.88 kg

DRUGS (7)
  1. LUNSTA [Concomitant]
  2. AUSTRALIAN DREAM PAIN RELIEVING ARTHRITIS [Suspect]
     Active Substance: HISTAMINE DIHYDROCHLORIDE
     Indication: ARTHRALGIA
  3. TRAZDONE [Concomitant]
     Active Substance: TRAZODONE HYDROCHLORIDE
  4. MULTI- VITAMIN [Concomitant]
  5. HUMIRA [Concomitant]
     Active Substance: ADALIMUMAB
  6. MAGNESIUM [Concomitant]
     Active Substance: MAGNESIUM
  7. VIT D, [Concomitant]

REACTIONS (2)
  - Rash [None]
  - Drug ineffective [None]

NARRATIVE: CASE EVENT DATE: 20160523
